FAERS Safety Report 6132304-9 (Version None)
Quarter: 2009Q1

REPORT INFORMATION
  Report Type: 
  Country: None (occurrence: None)
  Receive Date: 20090325
  Receipt Date: 20090310
  Transmission Date: 20090719
  Serious: Yes (Death)
  Sender: FDA-Public Use
  Company Number: NL-PFIZER INC-2009183987

PATIENT

DRUGS (6)
  1. PREGABALIN [Suspect]
     Indication: NEUROPATHY PERIPHERAL
  2. OMEPRAZOLE [Concomitant]
  3. TORASEMIDE [Concomitant]
  4. ENALAPRIL [Concomitant]
  5. TILIDINE [Concomitant]
  6. FLUPIRTINE [Concomitant]

REACTIONS (1)
  - SUDDEN DEATH [None]
